FAERS Safety Report 14892489 (Version 1)
Quarter: 2018Q2

REPORT INFORMATION
  Report Type: Spontaneous
  Country: PL (occurrence: PL)
  Receive Date: 20180514
  Receipt Date: 20180514
  Transmission Date: 20180711
  Serious: Yes (Hospitalization, Other)
  Sender: FDA-Public Use
  Company Number: PL-SA-2018SA130306

PATIENT
  Sex: Female

DRUGS (7)
  1. TAMOXIFEN [Concomitant]
     Active Substance: TAMOXIFEN
     Indication: BREAST CANCER
     Dosage: /DAY
     Route: 065
     Dates: start: 20150618, end: 20151027
  2. PERTUZUMAB. [Suspect]
     Active Substance: PERTUZUMAB
     Indication: BREAST CANCER
     Route: 065
     Dates: start: 20170608
  3. CYCLOPHOSPHAMIDE. [Concomitant]
     Active Substance: CYCLOPHOSPHAMIDE
     Indication: BREAST CANCER
     Dosage: 6X
  4. TAXOTERE [Concomitant]
     Active Substance: DOCETAXEL
     Indication: BREAST CANCER
     Dosage: 6X
  5. TRASTUZUMAB. [Suspect]
     Active Substance: TRASTUZUMAB
     Indication: BREAST CANCER
     Route: 065
     Dates: start: 20170608
  6. DOCETAXEL. [Suspect]
     Active Substance: DOCETAXEL
     Indication: BREAST CANCER
     Route: 051
     Dates: start: 20170608
  7. TRASTUZUMAB. [Suspect]
     Active Substance: TRASTUZUMAB
     Indication: BREAST CANCER
     Route: 065
     Dates: start: 20131031, end: 20141030

REACTIONS (23)
  - Asthenia [Unknown]
  - Hepatic lesion [Unknown]
  - Balance disorder [Unknown]
  - Hyponatraemia [Unknown]
  - Blood creatinine increased [Unknown]
  - Hyperuricaemia [Unknown]
  - Blood corticotrophin decreased [Unknown]
  - Cortisol increased [Unknown]
  - Weight decreased [Unknown]
  - Acute kidney injury [Unknown]
  - Malnutrition [Unknown]
  - Hypotension [Unknown]
  - Tachycardia [Unknown]
  - Dehydration [Unknown]
  - Upper respiratory tract infection [Unknown]
  - Primary adrenal insufficiency [Unknown]
  - Febrile neutropenia [Unknown]
  - Skin discolouration [Unknown]
  - Adrenal adenoma [Unknown]
  - Metastases to liver [Unknown]
  - Hyperkalaemia [Unknown]
  - General physical health deterioration [Unknown]
  - Nail disorder [Recovering/Resolving]

NARRATIVE: CASE EVENT DATE: 201604
